FAERS Safety Report 9225356 (Version 1)
Quarter: 2013Q2

REPORT INFORMATION
  Report Type: Spontaneous
  Country: FR (occurrence: FR)
  Receive Date: 20130411
  Receipt Date: 20130411
  Transmission Date: 20140414
  Serious: Yes (Other)
  Sender: FDA-Public Use
  Company Number: FR-JNJFOC-20130402302

PATIENT
  Age: 26 Year
  Sex: Female

DRUGS (4)
  1. REMICADE [Suspect]
     Indication: ILEAL STENOSIS
     Dosage: 2ND INFUSION
     Route: 042
     Dates: start: 20130319
  2. REMICADE [Suspect]
     Indication: ILEAL STENOSIS
     Dosage: 1ST INFUSION
     Route: 042
     Dates: start: 20130306
  3. IMUREL [Concomitant]
     Route: 065
     Dates: start: 201301
  4. CORTICOSTEROID NOS [Concomitant]
     Route: 065

REACTIONS (1)
  - Galactorrhoea [Unknown]
